FAERS Safety Report 17820364 (Version 1)
Quarter: 2020Q2

REPORT INFORMATION
  Report Type: Spontaneous
  Country: JP (occurrence: JP)
  Receive Date: 20200525
  Receipt Date: 20200525
  Transmission Date: 20200714
  Serious: Yes (Hospitalization)
  Sender: FDA-Public Use
  Company Number: JP-TEVA-2020-JP-1239404

PATIENT
  Age: 53 Year
  Sex: Male
  Weight: 57 kg

DRUGS (6)
  1. CEFTRIAXONE. [Concomitant]
     Active Substance: CEFTRIAXONE
     Indication: ANTIBIOTIC THERAPY
     Route: 065
  2. CISPLATIN. [Suspect]
     Active Substance: CISPLATIN
     Indication: PANCREATIC NEUROENDOCRINE TUMOUR
     Route: 065
  3. CARBOPLATIN. [Suspect]
     Active Substance: CARBOPLATIN
     Indication: PANCREATIC NEUROENDOCRINE TUMOUR
     Route: 065
  4. IRINOTECAN [Concomitant]
     Active Substance: IRINOTECAN
     Indication: PANCREATIC NEUROENDOCRINE TUMOUR
     Route: 065
  5. ETOPOSIDE. [Concomitant]
     Active Substance: ETOPOSIDE
     Indication: PANCREATIC NEUROENDOCRINE TUMOUR
     Route: 065
  6. TAZOBACTAM/PIPERACILLIN [Concomitant]
     Active Substance: PIPERACILLIN SODIUM\TAZOBACTAM SODIUM
     Indication: ANTIBIOTIC THERAPY
     Route: 065

REACTIONS (3)
  - Drug eruption [Unknown]
  - Tubulointerstitial nephritis [Recovering/Resolving]
  - Kidney enlargement [Recovering/Resolving]
